FAERS Safety Report 17946352 (Version 1)
Quarter: 2020Q2

REPORT INFORMATION
  Report Type: Spontaneous
  Country: CA (occurrence: CA)
  Receive Date: 20200625
  Receipt Date: 20200625
  Transmission Date: 20200714
  Serious: Yes (Other)
  Sender: FDA-Public Use
  Company Number: CA-SERVIER-S20005691

PATIENT

DRUGS (1)
  1. ONCASPAR [Suspect]
     Active Substance: PEGASPARGASE
     Indication: ACUTE LYMPHOCYTIC LEUKAEMIA
     Dosage: 1,250U/M2, Q3WKS FOR 10-CYCLE
     Route: 042

REACTIONS (1)
  - Pleuritic pain [Unknown]

NARRATIVE: CASE EVENT DATE: 2020
